FAERS Safety Report 6901900-0 (Version None)
Quarter: 2010Q3

REPORT INFORMATION
  Report Type: 
  Country: None (occurrence: None)
  Receive Date: 20100803
  Receipt Date: 20080329
  Transmission Date: 20110219
  Serious: No
  Sender: FDA-Public Use
  Company Number: US-PFIZER INC-2008012609

PATIENT
  Sex: Male
  Weight: 145.2 kg

DRUGS (3)
  1. LYRICA [Suspect]
     Indication: MYOFASCIAL PAIN SYNDROME
     Route: 048
     Dates: start: 20080102
  2. METHADONE HCL [Concomitant]
  3. LORCET-HD [Concomitant]

REACTIONS (1)
  - DRUG INEFFECTIVE [None]
